FAERS Safety Report 6831388-X (Version None)
Quarter: 2010Q3

REPORT INFORMATION
  Report Type: 
  Country: None (occurrence: None)
  Receive Date: 20100707
  Receipt Date: 20100629
  Transmission Date: 20110219
  Serious: No
  Sender: FDA-Public Use
  Company Number: 005388

PATIENT
  Sex: Female
  Weight: 59.8 kg

DRUGS (16)
  1. KEPPRA [Suspect]
     Indication: CONVULSION
     Dosage: SEE IMAGE
     Route: 048
     Dates: start: 20090101, end: 20090701
  2. KEPPRA [Suspect]
     Indication: CONVULSION
     Dosage: SEE IMAGE
     Route: 048
     Dates: start: 20090701, end: 20090701
  3. KEPPRA [Suspect]
     Indication: CONVULSION
     Dosage: SEE IMAGE
     Route: 048
     Dates: start: 20100101, end: 20100120
  4. KEPPRA [Suspect]
     Indication: CONVULSION
     Dosage: SEE IMAGE
     Route: 048
     Dates: start: 20090101, end: 20100201
  5. KEPPRA [Suspect]
     Indication: CONVULSION
     Dosage: SEE IMAGE
     Route: 048
     Dates: start: 20090101, end: 20100201
  6. KEPPRA [Suspect]
     Indication: CONVULSION
     Dosage: SEE IMAGE
     Route: 048
     Dates: start: 20100120
  7. CLONAZEPAM [Suspect]
     Indication: CONVULSION
     Dosage: (ORAL)
     Route: 048
     Dates: start: 20090701, end: 20090801
  8. LORAZEPAM [Concomitant]
  9. PAROXETINE [Concomitant]
  10. CALTRATE + D /01721501/ [Concomitant]
  11. CITRUCEL [Concomitant]
  12. NASACORT [Concomitant]
  13. ASTELIN [Concomitant]
  14. NIACIN [Concomitant]
  15. FOLIC ACID [Concomitant]
  16. MAGNESIUM OXIDE [Concomitant]

REACTIONS (5)
  - ASTHENIA [None]
  - BLOOD TEST ABNORMAL [None]
  - FEEDING DISORDER [None]
  - TREMOR [None]
  - WEIGHT DECREASED [None]
